FAERS Safety Report 5595796-X (Version None)
Quarter: 2008Q1

REPORT INFORMATION
  Report Type: 
  Country: None (occurrence: None)
  Receive Date: 20080118
  Receipt Date: 20080114
  Transmission Date: 20080703
  Serious: Yes (Other)
  Sender: FDA-Public Use
  Company Number: D0055788A

PATIENT
  Sex: Female

DRUGS (8)
  1. SULTANOL [Suspect]
     Indication: ASTHMA
     Route: 055
  2. MUCOSOLVAN [Concomitant]
     Route: 048
  3. SYMBICORT [Concomitant]
     Route: 055
  4. ATROVENT [Concomitant]
     Route: 065
  5. SALBULAIR [Concomitant]
     Route: 065
  6. CORTISON [Concomitant]
     Route: 048
     Dates: start: 20071208
  7. BRONCHORETARD MITE [Concomitant]
     Route: 065
  8. SINGULAIR [Concomitant]
     Route: 065

REACTIONS (4)
  - DYSPNOEA [None]
  - DYSPNOEA EXERTIONAL [None]
  - INSOMNIA [None]
  - RHONCHI [None]
